FAERS Safety Report 8255449-6 (Version None)
Quarter: 2012Q1

REPORT INFORMATION
  Report Type: 
  Country: None (occurrence: None)
  Receive Date: 20120329
  Receipt Date: 20120319
  Transmission Date: 20120608
  Serious: Yes (Hospitalization)
  Sender: FDA-Public Use
  Company Number: TCI2011A01688

PATIENT
  Age: 27 Year
  Sex: Male

DRUGS (3)
  1. LANSOPRAZOLE [Suspect]
     Indication: PROPHYLAXIS AGAINST GASTROINTESTINAL ULCER
     Dosage: 30 MG (30 MG, 1 IN 1 D), PER ORAL
     Route: 048
     Dates: end: 20110117
  2. PREDNISOLONE [Concomitant]
  3. ALENDRONATE SODIUM [Suspect]
     Indication: OSTEOPOROSIS PROPHYLAXIS
     Dosage: 35 MG (35 MG, 1 IN 1 WK), PER ORAL
     Route: 048
     Dates: end: 20110117

REACTIONS (3)
  - ERYTHEMA [None]
  - CONJUNCTIVAL HYPERAEMIA [None]
  - ORAL MUCOSAL ERYTHEMA [None]
